FAERS Safety Report 8795667 (Version 1)
Quarter: 2012Q4

REPORT INFORMATION
  Report Type: 
  Country: CN (occurrence: CN)
  Receive Date: 20120920
  Receipt Date: 20120920
  Transmission Date: 20130627
  Serious: Yes (Other)
  Sender: FDA-Public Use
  Company Number: CN-BAYER-2012-097750

PATIENT
  Age: 61 Year
  Sex: Female

DRUGS (2)
  1. ACETYLSALICYLIC ACID({=100 MG) [Suspect]
     Indication: CEREBRAL INFARCTION
     Dosage: 100 mg, QD
     Route: 048
     Dates: start: 20110512, end: 20110523
  2. ACETYLSALICYLIC ACID({=100 MG) [Suspect]
     Indication: HYPERTENSION

REACTIONS (6)
  - Gastrointestinal haemorrhage [Recovered/Resolved]
  - Abdominal pain [Recovered/Resolved]
  - Diarrhoea [Recovered/Resolved]
  - Dizziness [Recovered/Resolved]
  - Pallor [Recovered/Resolved]
  - Faeces discoloured [Recovered/Resolved]
